FAERS Safety Report 8965784 (Version 3)
Quarter: 2013Q2

REPORT INFORMATION
  Report Type: Spontaneous
  Country: DE (occurrence: DE)
  Receive Date: 20121214
  Receipt Date: 20130422
  Transmission Date: 20140414
  Serious: Yes (Other)
  Sender: FDA-Public Use
  Company Number: DE-GENZYME-POMP-1002651

PATIENT
  Age: 0 Year
  Sex: Male
  Weight: 1.89 kg

DRUGS (1)
  1. MYOZYME [Suspect]
     Indication: GLYCOGEN STORAGE DISEASE TYPE II
     Dosage: 20 MG/KG, UNK
     Route: 064
     Dates: start: 20090520

REACTIONS (1)
  - Respiratory disorder [Recovered/Resolved]
